FAERS Safety Report 17030306 (Version 4)
Quarter: 2021Q1

REPORT INFORMATION
  Report Type: Spontaneous
  Country: US (occurrence: US)
  Receive Date: 20191114
  Receipt Date: 20210111
  Transmission Date: 20210419
  Serious: Yes (Other)
  Sender: FDA-Public Use
  Company Number: US-PFIZER INC-2016400449

PATIENT
  Age: 67 Year
  Sex: Male

DRUGS (2)
  1. EFFEXOR XR [Suspect]
     Active Substance: VENLAFAXINE HYDROCHLORIDE
     Indication: PANIC DISORDER
     Dosage: 150 MG, 2X/DAY {1 PO (PER ORAL) BID (TWO TIMES A DAY)}
     Route: 048
  2. EFFEXOR XR [Suspect]
     Active Substance: VENLAFAXINE HYDROCHLORIDE
     Indication: MAJOR DEPRESSION
     Dosage: 300 MG, DAILY (TWO EVERY MORNING)[2 QD (ONCE DAILY)]

REACTIONS (2)
  - Prostate cancer [Unknown]
  - Prescribed overdose [Unknown]
